FAERS Safety Report 21564904 (Version 1)
Quarter: 2022Q4

REPORT INFORMATION
  Report Type: Spontaneous
  Country: US (occurrence: US)
  Receive Date: 20221108
  Receipt Date: 20221108
  Transmission Date: 20230113
  Serious: Yes (Other)
  Sender: FDA-Public Use
  Company Number: US-ROCHE-3206017

PATIENT
  Age: 31 Year
  Sex: Male
  Weight: 71.277 kg

DRUGS (8)
  1. CLONAZEPAM [Suspect]
     Active Substance: CLONAZEPAM
     Indication: Product used for unknown indication
     Dates: start: 201712
  2. OCREVUS [Suspect]
     Active Substance: OCRELIZUMAB
     Indication: Relapsing multiple sclerosis
     Dosage: SINGLE 2 WEEKS
     Route: 042
     Dates: start: 202105
  3. OCREVUS [Suspect]
     Active Substance: OCRELIZUMAB
     Indication: Relapsing multiple sclerosis
     Dosage: SINGLE 6 MONTHS
     Route: 042
     Dates: start: 20210609
  4. OCREVUS [Suspect]
     Active Substance: OCRELIZUMAB
     Indication: Relapsing multiple sclerosis
     Dosage: SINGLE 6 MONTHS
     Route: 042
     Dates: start: 20211220
  5. OCREVUS [Suspect]
     Active Substance: OCRELIZUMAB
     Indication: Relapsing multiple sclerosis
     Dosage: SINGLE 6 MONTHS
     Route: 042
     Dates: start: 20220620
  6. Lioresa [Concomitant]
     Dosage: 10 MG, TID
     Route: 048
  7. XANAX [Concomitant]
     Active Substance: ALPRAZOLAM
  8. KEPPRA [Concomitant]
     Active Substance: LEVETIRACETAM

REACTIONS (12)
  - Pneumonia aspiration [Unknown]
  - Speech disorder [Unknown]
  - Dysphagia [Unknown]
  - Musculoskeletal stiffness [Unknown]
  - Rash [Recovered/Resolved]
  - Fall [Unknown]
  - Hypokinesia [Unknown]
  - Skin laceration [Unknown]
  - Memory impairment [Unknown]
  - Disturbance in attention [Unknown]
  - Visual impairment [Unknown]
  - Urinary incontinence [Unknown]

NARRATIVE: CASE EVENT DATE: 20210501
